FAERS Safety Report 20462874 (Version 1)
Quarter: 2022Q1

REPORT INFORMATION
  Report Type: Spontaneous
  Country: US (occurrence: US)
  Receive Date: 20220211
  Receipt Date: 20220211
  Transmission Date: 20220424
  Serious: No
  Sender: FDA-Public Use
  Company Number: US-GILEAD-2022-0569012

PATIENT
  Sex: Female

DRUGS (1)
  1. VEKLURY [Suspect]
     Active Substance: REMDESIVIR
     Indication: COVID-19
     Dosage: UNK
     Route: 065
     Dates: start: 202108

REACTIONS (5)
  - Neuropathy peripheral [Not Recovered/Not Resolved]
  - Palpitations [Recovered/Resolved]
  - Peripheral nerve injury [Not Recovered/Not Resolved]
  - Feeling hot [Recovered/Resolved]
  - Feeding disorder [Recovered/Resolved]
